FAERS Safety Report 5119693-9 (Version None)
Quarter: 2006Q3

REPORT INFORMATION
  Report Type: 
  Country: None (occurrence: None)
  Receive Date: 20060928
  Receipt Date: 20060920
  Transmission Date: 20061208
  Serious: Yes (Disabling, Other)
  Sender: FDA-Public Use
  Company Number: 2006106095

PATIENT
  Age: 49 Year
  Sex: Female
  Weight: 112.0385 kg

DRUGS (13)
  1. LIPITOR [Suspect]
     Indication: DIABETES MELLITUS
     Dosage: 20 MG (20 MG, 1 IN 1D)
     Dates: start: 20060201, end: 20060701
  2. LIPITOR [Suspect]
     Indication: HYPERLIPIDAEMIA
     Dosage: 20 MG (20 MG, 1 IN 1D)
     Dates: start: 20060201, end: 20060701
  3. GLUCOVANCE [Concomitant]
  4. VALSARTAN [Concomitant]
  5. HYDROCHLOROTHIAZIDE [Concomitant]
  6. ALLEGRA [Concomitant]
  7. ACTOS [Concomitant]
  8. DRUG, UNSPECIFIED (DRUG, UNSPECIFIED) [Concomitant]
  9. VITAMIN C (VITAMIN C) [Concomitant]
  10. VITAMIN E [Concomitant]
  11. VITAMIN B6 [Concomitant]
  12. VITAMIN B12 [Concomitant]
  13. FOLIC ACID [Concomitant]

REACTIONS (17)
  - ABASIA [None]
  - ARTHRALGIA [None]
  - ASTHENIA [None]
  - COORDINATION ABNORMAL [None]
  - DYSSTASIA [None]
  - FALL [None]
  - FEELING HOT AND COLD [None]
  - HYPOAESTHESIA [None]
  - IMPAIRED WORK ABILITY [None]
  - MIDDLE INSOMNIA [None]
  - MOVEMENT DISORDER [None]
  - MUSCLE SPASMS [None]
  - MYALGIA [None]
  - PAIN IN EXTREMITY [None]
  - SCREAMING [None]
  - TREATMENT NONCOMPLIANCE [None]
  - WEIGHT INCREASED [None]
